FAERS Safety Report 9767584 (Version 1)
Quarter: 2013Q4

REPORT INFORMATION
  Report Type: Spontaneous
  Country: DE (occurrence: DE)
  Receive Date: 20131217
  Receipt Date: 20131217
  Transmission Date: 20140711
  Serious: Yes (Life-Threatening)
  Sender: FDA-Public Use
  Company Number: GXKR2013DE003811

PATIENT
  Sex: 0

DRUGS (2)
  1. CLOZAPINE [Suspect]
     Indication: SCHIZOAFFECTIVE DISORDER
     Dosage: 300 MG, UNK
     Route: 048
     Dates: start: 20130704, end: 20130927
  2. ORFIRIL [Concomitant]
     Indication: SCHIZOAFFECTIVE DISORDER
     Dosage: 2000 MG, UNK
     Route: 048
     Dates: start: 2005, end: 201310

REACTIONS (3)
  - Pancytopenia [Recovered/Resolved]
  - Leukopenia [Recovered/Resolved]
  - Pneumonia [Recovered/Resolved]
